FAERS Safety Report 25192364 (Version 2)
Quarter: 2025Q2

REPORT INFORMATION
  Report Type: Spontaneous
  Country: US (occurrence: US)
  Receive Date: 20250414
  Receipt Date: 20250617
  Transmission Date: 20250717
  Serious: No
  Sender: MERCK SHARP & DOHME LLC
  Company Number: US-009507513-2274998

PATIENT
  Sex: Female
  Weight: 55.8 kg

DRUGS (35)
  1. SOTATERCEPT [Suspect]
     Active Substance: SOTATERCEPT
     Route: 058
  2. SOTATERCEPT [Suspect]
     Active Substance: SOTATERCEPT
  3. SOTATERCEPT [Suspect]
     Active Substance: SOTATERCEPT
  4. SOTATERCEPT [Suspect]
     Active Substance: SOTATERCEPT
  5. TREPROSTINIL SODIUM [Suspect]
     Active Substance: TREPROSTINIL SODIUM
     Route: 058
     Dates: start: 20130104
  6. Multivitamins (Ascorbic acid, Ergocalciferol, Folic acid, Nicotinam... [Concomitant]
  7. TRAMADOL HYDROCHLORIDE [Concomitant]
     Active Substance: TRAMADOL HYDROCHLORIDE
  8. CALCIUM [Concomitant]
     Active Substance: CALCIUM
  9. OXYGEN [Concomitant]
     Active Substance: OXYGEN
  10. SPIRONOLACTONE [Concomitant]
     Active Substance: SPIRONOLACTONE
  11. OMEPRAZOLE [Concomitant]
     Active Substance: OMEPRAZOLE
  12. FUROSEMIDE [Concomitant]
     Active Substance: FUROSEMIDE
  13. AMBRISENTAN [Concomitant]
     Active Substance: AMBRISENTAN
  14. Immune health (Ascorbic acid, Echinacea purpurea, Hydrastis canaden... [Concomitant]
  15. METOPROLOL TARTRATE [Concomitant]
     Active Substance: METOPROLOL TARTRATE
  16. VITAMIN B12 [Concomitant]
     Active Substance: CYANOCOBALAMIN
  17. Saline nasal spray (Sodium chloride) [Concomitant]
  18. ACETAMINOPHEN [Concomitant]
     Active Substance: ACETAMINOPHEN
  19. Elderberry (Sambucus nigra fruit) [Concomitant]
  20. MYCOPHENOLATE MOFETIL [Concomitant]
     Active Substance: MYCOPHENOLATE MOFETIL
  21. MAGNESIUM [Concomitant]
     Active Substance: MAGNESIUM
  22. VITAMIN D3 [Concomitant]
     Active Substance: CHOLECALCIFEROL
  23. ZOLPIDEM TARTRATE [Concomitant]
     Active Substance: ZOLPIDEM TARTRATE
  24. TADALAFIL [Concomitant]
     Active Substance: TADALAFIL
  25. ZYRTEC [Concomitant]
     Active Substance: CETIRIZINE HYDROCHLORIDE
  26. CORICIDIN HBP COUGH AND COLD [Concomitant]
     Active Substance: CHLORPHENIRAMINE MALEATE\DEXTROMETHORPHAN HYDROBROMIDE
  27. VITAMIN B12 [Concomitant]
     Active Substance: CYANOCOBALAMIN
  28. KETAMINE HYDROCHLORIDE [Concomitant]
     Active Substance: KETAMINE HYDROCHLORIDE
  29. Lecithin (Glycine max extract) [Concomitant]
  30. Clonidine (Clonidine hydrochloride) [Concomitant]
  31. KETOPROFEN [Concomitant]
     Active Substance: KETOPROFEN
  32. LIDOCAINE HYDROCHLORIDE [Concomitant]
     Active Substance: LIDOCAINE HYDROCHLORIDE
  33. AMITRIPTYLINE HYDROCHLORIDE [Concomitant]
     Active Substance: AMITRIPTYLINE HYDROCHLORIDE
  34. GABAPENTIN [Concomitant]
     Active Substance: GABAPENTIN
  35. POLOXAMER [Concomitant]
     Active Substance: POLOXAMER

REACTIONS (1)
  - Injection site pruritus [Recovered/Resolved]
